FAERS Safety Report 9281664 (Version 6)
Quarter: 2013Q3

REPORT INFORMATION
  Report Type: Report from Study
  Country: NL (occurrence: NL)
  Receive Date: 20130509
  Receipt Date: 20130716
  Transmission Date: 20140515
  Serious: Yes (Death, Life-Threatening)
  Sender: FDA-Public Use
  Company Number: NL-009507513-1305NLD001243

PATIENT
  Age: 64 Year
  Sex: Female
  Weight: 65 kg

DRUGS (2)
  1. CASPOFUNGIN ACETATE [Suspect]
     Indication: PYREXIA
     Route: 042
  2. CASPOFUNGIN ACETATE [Suspect]
     Indication: NEUTROPENIA

REACTIONS (8)
  - Respiratory failure [Recovering/Resolving]
  - Bronchopulmonary aspergillosis [Recovered/Resolved]
  - Immune reconstitution inflammatory syndrome [Recovered/Resolved]
  - Respiratory failure [Fatal]
  - Epilepsy [Fatal]
  - Cerebral aspergillosis [Fatal]
  - Pneumonia staphylococcal [Fatal]
  - Sepsis [Recovered/Resolved with Sequelae]
